FAERS Safety Report 9133762 (Version 2)
Quarter: 2013Q1

REPORT INFORMATION
  Report Type: Report from Study
  Country: US (occurrence: US)
  Receive Date: 20130302
  Receipt Date: 20130312
  Transmission Date: 20140127
  Serious: Yes (Hospitalization, Disabling)
  Sender: FDA-Public Use
  Company Number: US-US-EMD SERONO, INC.-7195705

PATIENT
  Sex: Female
  Weight: 103 kg

DRUGS (10)
  1. REBIF [Suspect]
     Indication: RELAPSING-REMITTING MULTIPLE SCLEROSIS
     Route: 058
     Dates: start: 20101027
  2. VITAMIN B12 [Concomitant]
     Indication: PRODUCT USED FOR UNKNOWN INDICATION
  3. VENTOLIN [Concomitant]
     Indication: ASTHMA
  4. OMEPRAZOLE [Concomitant]
     Indication: DYSPEPSIA
  5. IMITREX [Concomitant]
     Indication: MIGRAINE
  6. ZOLOFT [Concomitant]
     Indication: DEPRESSION
     Route: 048
     Dates: start: 20111003
  7. DEPAKOTE [Concomitant]
     Indication: HEADACHE
     Route: 048
     Dates: start: 20091130
  8. DEPAKOTE [Concomitant]
     Indication: MIGRAINE
  9. VITAMIN D3 [Concomitant]
     Indication: PRODUCT USED FOR UNKNOWN INDICATION
  10. SYMBICORT [Concomitant]
     Indication: PRODUCT USED FOR UNKNOWN INDICATION

REACTIONS (4)
  - Pelvic adhesions [Recovered/Resolved]
  - Ovarian rupture [Recovering/Resolving]
  - Urinary incontinence [Recovered/Resolved]
  - Influenza like illness [Recovering/Resolving]
